FAERS Safety Report 7349590-X (Version None)
Quarter: 2011Q1

REPORT INFORMATION
  Report Type: 
  Country: None (occurrence: None)
  Receive Date: 20110314
  Receipt Date: 20110308
  Transmission Date: 20110831
  Serious: Yes (Other)
  Sender: FDA-Public Use
  Company Number: US-SANOFI-AVENTIS-2011SA014582

PATIENT
  Age: 7 Year
  Sex: Female

DRUGS (3)
  1. NOVOLOG [Concomitant]
     Dosage: 3 UNITS PER MEAL BUT AT SUPPERTIME ONLY TO TREAT HER DM 1 DOSE:3 UNIT(S)
     Route: 058
  2. LANTUS [Suspect]
     Dosage: DOSE:10 UNIT(S)
     Route: 058
  3. LANTUS [Suspect]
     Dosage: DOSE:15 UNIT(S)
     Route: 058

REACTIONS (2)
  - LOSS OF CONSCIOUSNESS [None]
  - CONVULSION [None]
